FAERS Safety Report 8613292-X (Version None)
Quarter: 2012Q3

REPORT INFORMATION
  Report Type: 
  Country: None (occurrence: None)
  Receive Date: 20120822
  Receipt Date: 20120720
  Transmission Date: 20120928
  Serious: No
  Sender: FDA-Public Use
  Company Number: US-009507513-1206USA03895

PATIENT

DRUGS (3)
  1. LUMIGAN [Suspect]
     Dosage: UNK
     Route: 047
     Dates: start: 20110301, end: 20110503
  2. ZIOPTAN [Suspect]
     Dosage: UNK, QH
     Route: 047
  3. TIMOPTIC [Suspect]
     Indication: GLAUCOMA
     Dosage: UNK, QAM
     Route: 047
     Dates: start: 20110222, end: 20110503

REACTIONS (4)
  - OBSTRUCTIVE AIRWAYS DISORDER [None]
  - DRUG HYPERSENSITIVITY [None]
  - EYE IRRITATION [None]
  - OCULAR HYPERAEMIA [None]
